FAERS Safety Report 5241716-7 (Version None)
Quarter: 2007Q1

REPORT INFORMATION
  Report Type: 
  Country: None (occurrence: None)
  Receive Date: 20070220
  Receipt Date: 20070208
  Transmission Date: 20070707
  Serious: Yes (Hospitalization, Other)
  Sender: FDA-Public Use
  Company Number: US-ELI_LILLY_AND_COMPANY-USA0506100630

PATIENT
  Age: 75 Year
  Sex: Female

DRUGS (2)
  1. HUMALOG [Suspect]
     Indication: DIABETES MELLITUS
     Dosage: UNK, AS NEEDED
     Route: 058
     Dates: start: 20050328
  2. COUMADIN [Concomitant]
     Indication: HEART VALVE REPLACEMENT
     Dosage: UNK, UNKNOWN

REACTIONS (2)
  - AORTIC STENOSIS [None]
  - BLOOD GLUCOSE INCREASED [None]
